FAERS Safety Report 4290495-9 (Version None)
Quarter: 2004Q1

REPORT INFORMATION
  Report Type: 
  Country: None (occurrence: None)
  Receive Date: 20040209
  Receipt Date: 20040126
  Transmission Date: 20041129
  Serious: Yes (Hospitalization)
  Sender: FDA-Public Use
  Company Number: 2003181477FR

PATIENT
  Age: 36 Year
  Sex: Female

DRUGS (1)
  1. XALACOM(LATANOPROST, TIMOLOL) SOLUTION, STERILE [Suspect]
     Dosage: OPHTHALMIC
     Route: 047
     Dates: start: 20030518, end: 20030818

REACTIONS (1)
  - CEREBROVASCULAR ACCIDENT [None]
